FAERS Safety Report 20437201 (Version 4)
Quarter: 2022Q1

REPORT INFORMATION
  Report Type: Report from Study
  Country: US (occurrence: US)
  Receive Date: 20220207
  Receipt Date: 20220328
  Transmission Date: 20220423
  Serious: Yes (Other)
  Sender: FDA-Public Use
  Company Number: US-GLAXOSMITHKLINE-US2022018799

PATIENT
  Age: 79 Year
  Sex: Female

DRUGS (1)
  1. BELANTAMAB MAFODOTIN [Suspect]
     Active Substance: BELANTAMAB MAFODOTIN
     Indication: Plasma cell myeloma
     Dosage: UNK
     Dates: start: 20220125

REACTIONS (5)
  - Neovascular age-related macular degeneration [Unknown]
  - Visual acuity reduced [Unknown]
  - Keratopathy [Unknown]
  - Vision blurred [Unknown]
  - Corneal disorder [Unknown]

NARRATIVE: CASE EVENT DATE: 20220302
